FAERS Safety Report 5614188-8 (Version None)
Quarter: 2008Q1

REPORT INFORMATION
  Report Type: 
  Country: None (occurrence: None)
  Receive Date: 20080205
  Receipt Date: 20080201
  Transmission Date: 20080703
  Serious: Yes (Other)
  Sender: FDA-Public Use
  Company Number: B0506540A

PATIENT
  Age: 88 Year
  Sex: Male

DRUGS (1)
  1. ALBENDAZOLE [Suspect]
     Dosage: 400MG TWICE PER DAY
     Route: 048
     Dates: start: 20071213, end: 20080101

REACTIONS (1)
  - APLASTIC ANAEMIA [None]
